FAERS Safety Report 11231262 (Version 1)
Quarter: 2015Q3

REPORT INFORMATION
  Report Type: Report from Study
  Country: US (occurrence: US)
  Receive Date: 20150701
  Receipt Date: 20150701
  Transmission Date: 20151125
  Serious: No
  Sender: FDA-Public Use
  Company Number: PHEH2015US007392

PATIENT
  Age: 24 Year
  Sex: Female

DRUGS (1)
  1. ILARIS [Suspect]
     Active Substance: CANAKINUMAB
     Dosage: 300 MG, (EVERY 4 WEEKS)
     Route: 058
     Dates: start: 20150408

REACTIONS (2)
  - Insomnia [Unknown]
  - Infection [Unknown]

NARRATIVE: CASE EVENT DATE: 20150408
